FAERS Safety Report 9724759 (Version 4)
Quarter: 2014Q4

REPORT INFORMATION
  Report Type: Report from Study
  Country: ES (occurrence: ES)
  Receive Date: 20131202
  Receipt Date: 20141222
  Transmission Date: 20150529
  Serious: Yes (Death, Life-Threatening, Hospitalization)
  Sender: FDA-Public Use
  Company Number: ES-TEVA-405771USA

PATIENT
  Age: 74 Year
  Sex: Male

DRUGS (14)
  1. APO-PREDNISONE [Suspect]
     Active Substance: PREDNISONE
     Indication: PLASMA CELL MYELOMA
     Dosage: REGIMEN #3
     Dates: start: 20130221, end: 20130222
  2. CISPLATIN. [Suspect]
     Active Substance: CISPLATIN
     Dosage: REGIMEN #2
     Dates: start: 20130416, end: 20130426
  3. LENALIDOMIDE [Suspect]
     Active Substance: LENALIDOMIDE
     Dosage: REGIMEN #6
     Dates: start: 20130416, end: 20130426
  4. LEVOFLOXACIN. [Concomitant]
     Active Substance: LEVOFLOXACIN
     Dates: start: 20130209
  5. VELCADE [Suspect]
     Active Substance: BORTEZOMIB
     Dosage: REGIMEN #3
     Dates: start: 20130416, end: 20130426
  6. LENALIDOMIDE [Suspect]
     Active Substance: LENALIDOMIDE
     Indication: PLASMA CELL MYELOMA
     Dosage: REGIMEN #6
     Dates: start: 20130313, end: 20130412
  7. ADRIAMYCIN [Suspect]
     Active Substance: DOXORUBICIN HYDROCHLORIDE
     Dosage: REGIMEN #2
     Dates: start: 20130416, end: 20130426
  8. ADRIAMYCIN [Suspect]
     Active Substance: DOXORUBICIN HYDROCHLORIDE
     Indication: PLASMA CELL MYELOMA
     Dosage: REGIMEN #1
     Dates: start: 20130313, end: 20130412
  9. BENDAMUSTINE [Suspect]
     Active Substance: BENDAMUSTINE
     Indication: PLASMA CELL MYELOMA
     Route: 042
     Dates: start: 20130221, end: 20130222
  10. VELCADE [Suspect]
     Active Substance: BORTEZOMIB
     Indication: PLASMA CELL MYELOMA
     Dosage: REGIMEN #2
     Dates: start: 20130313, end: 20130412
  11. ACYCLOVIR. [Concomitant]
     Active Substance: ACYCLOVIR
     Indication: PRODUCT USED FOR UNKNOWN INDICATION
     Dates: start: 20120715
  12. BACTRIM [Concomitant]
     Active Substance: SULFAMETHOXAZOLE\TRIMETHOPRIM
     Indication: PRODUCT USED FOR UNKNOWN INDICATION
     Dates: start: 20110906
  13. EPOETIN BETA [Concomitant]
     Active Substance: ERYTHROPOIETIN
     Dates: start: 20121114
  14. CISPLATIN. [Suspect]
     Active Substance: CISPLATIN
     Indication: PLASMA CELL MYELOMA
     Dosage: REGIMEN #1
     Dates: start: 20130313, end: 20130412

REACTIONS (4)
  - Fatigue [Recovered/Resolved]
  - Aplasia [Recovered/Resolved]
  - Encephalopathy [Fatal]
  - Toxicity to various agents [Recovered/Resolved]

NARRATIVE: CASE EVENT DATE: 20130327
